FAERS Safety Report 21104604 (Version 2)
Quarter: 2022Q3

REPORT INFORMATION
  Report Type: Report from Study
  Country: CA (occurrence: CA)
  Receive Date: 20220720
  Receipt Date: 20220728
  Transmission Date: 20221026
  Serious: No
  Sender: FDA-Public Use
  Company Number: CA-Taiho Oncology Inc-EU-2022-01817

PATIENT
  Age: 39 Year
  Sex: Male

DRUGS (1)
  1. LONSURF [Suspect]
     Active Substance: TIPIRACIL HYDROCHLORIDE\TRIFLURIDINE
     Indication: Colorectal cancer metastatic
     Dosage: CURRENT CYCLE, DOSAGE AND FREQUENCY UNKNOWN
     Route: 048
     Dates: start: 20220117, end: 20220415

REACTIONS (1)
  - Disease progression [Unknown]
